FAERS Safety Report 8777399 (Version 1)
Quarter: 2012Q4

REPORT INFORMATION
  Report Type: 
  Country: PR (occurrence: PR)
  Receive Date: 20120911
  Receipt Date: 20120911
  Transmission Date: 20130627
  Serious: Yes (Other)
  Sender: FDA-Public Use
  Company Number: PR-PERRIGO-12PR007224

PATIENT
  Age: 45 Year
  Sex: Male
  Weight: 78.01 kg

DRUGS (6)
  1. DAYTIME PE ORIG LIQ 656 [Suspect]
     Indication: INFLUENZA LIKE ILLNESS
     Dosage: 5 mL, single
     Route: 048
     Dates: start: 20120817, end: 20120817
  2. DAYTIME PE ORIG LIQ 656 [Suspect]
     Dosage: 30 mL, single
     Route: 048
     Dates: start: 20120817, end: 20120817
  3. MULTIVITAMIN [Concomitant]
     Indication: SUPPLEMENTATION THERAPY
     Dosage: UNK, UNK
     Route: 048
  4. VITAMIN B 12 [Concomitant]
     Indication: SUPPLEMENTATION THERAPY
     Dosage: 100 mg, qd
     Route: 048
  5. GOLDEN SEAL [Concomitant]
     Indication: SUPPLEMENTATION THERAPY
     Dosage: UNK, UNK
     Route: 048
  6. ECHINACEA [Concomitant]
     Indication: SUPPLEMENTATION THERAPY
     Dosage: UNK, UNK
     Route: 048

REACTIONS (7)
  - Hypersensitivity [Recovering/Resolving]
  - Hyperhidrosis [Recovered/Resolved]
  - Cough [Recovering/Resolving]
  - Palpitations [Recovered/Resolved]
  - Throat irritation [Recovering/Resolving]
  - Inappropriate schedule of drug administration [Unknown]
  - Underdose [Unknown]
